FAERS Safety Report 10175844 (Version 1)
Quarter: 2014Q2

REPORT INFORMATION
  Report Type: Spontaneous
  Country: US (occurrence: US)
  Receive Date: 20140516
  Receipt Date: 20140516
  Transmission Date: 20141212
  Serious: No
  Sender: FDA-Public Use
  Company Number: US-009507513-1405USA007274

PATIENT
  Sex: Male

DRUGS (2)
  1. LIPTRUZET [Suspect]
     Dosage: DOSE/FREQUENCY-10/20MG ONCE DAILY
     Route: 048
  2. CRESTOR [Suspect]

REACTIONS (3)
  - Drug dose omission [Unknown]
  - Feeling abnormal [Unknown]
  - Pain in extremity [Unknown]
